FAERS Safety Report 9232641 (Version 1)
Quarter: 2013Q2

REPORT INFORMATION
  Report Type: Spontaneous
  Country: US (occurrence: None)
  Receive Date: 20130415
  Receipt Date: 20130415
  Transmission Date: 20140414
  Serious: Yes (Hospitalization)
  Sender: FDA-Public Use
  Company Number: None

PATIENT
  Age: 65 Year
  Sex: Male

DRUGS (3)
  1. AFINITOR [Suspect]
     Indication: RENAL CELL CARCINOMA
     Route: 048
     Dates: start: 20120921, end: 20130307
  2. AFINITOR [Suspect]
     Indication: LUNG NEOPLASM MALIGNANT
     Route: 048
     Dates: start: 20120921, end: 20130307
  3. AFINITOR [Suspect]
     Indication: BONE CANCER
     Route: 048
     Dates: start: 20120921, end: 20130307

REACTIONS (5)
  - Atrial fibrillation [None]
  - Haemorrhage [None]
  - Wheezing [None]
  - Cough [None]
  - Blood glucose increased [None]
